FAERS Safety Report 12074367 (Version 5)
Quarter: 2017Q4

REPORT INFORMATION
  Report Type: Report from Study
  Country: JP (occurrence: JP)
  Receive Date: 20160212
  Receipt Date: 20171219
  Transmission Date: 20180320
  Serious: Yes (Hospitalization)
  Sender: FDA-Public Use
  Company Number: JP-B.I. PHARMACEUTICALS,INC./RIDGEFIELD-2016-BI-08263NB

PATIENT
  Age: 64 Year
  Sex: Male
  Weight: 80.1 kg

DRUGS (19)
  1. NEORAL [Suspect]
     Active Substance: CYCLOSPORINE
     Route: 065
     Dates: start: 20160219
  2. BIBF 1120 [Suspect]
     Active Substance: NINTEDANIB
     Indication: IDIOPATHIC PULMONARY FIBROSIS
     Route: 065
     Dates: start: 20150910, end: 20151209
  3. PREDNISOLONE. [Suspect]
     Active Substance: PREDNISOLONE
     Indication: IDIOPATHIC PULMONARY FIBROSIS
     Route: 065
     Dates: end: 20151028
  4. PREDNISOLONE. [Suspect]
     Active Substance: PREDNISOLONE
     Route: 065
     Dates: start: 20160219
  5. ACTOS [Concomitant]
     Active Substance: PIOGLITAZONE HYDROCHLORIDE
     Indication: PRODUCT USED FOR UNKNOWN INDICATION
     Route: 065
  6. EQUA [Concomitant]
     Active Substance: VILDAGLIPTIN
     Indication: PRODUCT USED FOR UNKNOWN INDICATION
     Route: 065
  7. PREDNISOLONE. [Suspect]
     Active Substance: PREDNISOLONE
     Indication: INTERSTITIAL LUNG DISEASE
     Route: 065
     Dates: start: 20151029, end: 20151111
  8. ANPLAG [Concomitant]
     Active Substance: SARPOGRELATE
     Indication: PRODUCT USED FOR UNKNOWN INDICATION
     Route: 065
  9. PREDNISOLONE. [Suspect]
     Active Substance: PREDNISOLONE
     Route: 065
     Dates: start: 20151112
  10. PREDNISOLONE. [Suspect]
     Active Substance: PREDNISOLONE
     Route: 065
     Dates: start: 20151210, end: 20151212
  11. SUREPOST [Concomitant]
     Active Substance: REPAGLINIDE
     Indication: PRODUCT USED FOR UNKNOWN INDICATION
     Route: 065
     Dates: start: 20150911
  12. KARY UNI [Concomitant]
     Active Substance: PIRENOXINE
     Indication: PRODUCT USED FOR UNKNOWN INDICATION
     Route: 065
     Dates: start: 20151105
  13. KLARICID [Concomitant]
     Active Substance: CLARITHROMYCIN
     Indication: PRODUCT USED FOR UNKNOWN INDICATION
     Route: 065
     Dates: end: 20151025
  14. PREDNISOLONE. [Suspect]
     Active Substance: PREDNISOLONE
     Route: 065
     Dates: start: 20151213, end: 20151221
  15. NEORAL [Suspect]
     Active Substance: CYCLOSPORINE
     Indication: INTERSTITIAL LUNG DISEASE
     Route: 065
     Dates: start: 20151214
  16. PREDNISOLONE. [Suspect]
     Active Substance: PREDNISOLONE
     Route: 065
     Dates: start: 20151222
  17. CARBOCISTEINE [Concomitant]
     Active Substance: CARBOCYSTEINE
     Indication: PRODUCT USED FOR UNKNOWN INDICATION
     Route: 065
  18. KINEDAK [Concomitant]
     Active Substance: EPALRESTAT
     Indication: PRODUCT USED FOR UNKNOWN INDICATION
     Route: 065
  19. BAKTAR [Concomitant]
     Active Substance: SULFAMETHOXAZOLE\TRIMETHOPRIM
     Indication: PRODUCT USED FOR UNKNOWN INDICATION
     Route: 065

REACTIONS (3)
  - Interstitial lung disease [Not Recovered/Not Resolved]
  - Oesophageal candidiasis [Recovered/Resolved]
  - Oral candidiasis [Recovered/Resolved]

NARRATIVE: CASE EVENT DATE: 20151014
